FAERS Safety Report 12521037 (Version 2)
Quarter: 2016Q3

REPORT INFORMATION
  Report Type: Spontaneous
  Country: US (occurrence: US)
  Receive Date: 20160701
  Receipt Date: 20160708
  Transmission Date: 20161109
  Serious: Yes (Other)
  Sender: FDA-Public Use
  Company Number: US-SA-2016SA118558

PATIENT
  Age: 43 Year
  Sex: Female

DRUGS (2)
  1. SARGRAMOSTIM [Suspect]
     Active Substance: SARGRAMOSTIM
     Indication: ALVEOLAR PROTEINOSIS
     Dosage: TAPERED DOSE
     Route: 065
  2. SARGRAMOSTIM [Suspect]
     Active Substance: SARGRAMOSTIM
     Indication: ALVEOLAR PROTEINOSIS
     Route: 065

REACTIONS (6)
  - Nephrotic syndrome [Recovered/Resolved]
  - Nocturia [Recovered/Resolved]
  - Dyspnoea [Recovered/Resolved]
  - Oedema peripheral [Recovered/Resolved]
  - Glomerulonephritis membranous [Recovered/Resolved]
  - Off label use [Unknown]
